FAERS Safety Report 7364487-7 (Version None)
Quarter: 2011Q1

REPORT INFORMATION
  Report Type: 
  Country: None (occurrence: None)
  Receive Date: 20110315
  Receipt Date: 20110315
  Transmission Date: 20110831
  Serious: Yes (Death, Life-Threatening, Hospitalization, Disabling, Congenital Anomaly, Other)
  Sender: FDA-Public Use
  Company Number: None

PATIENT
  Age: 35 Year
  Sex: Female
  Weight: 58.9676 kg

DRUGS (1)
  1. AVELOX [Suspect]

REACTIONS (6)
  - NERVOUS SYSTEM DISORDER [None]
  - GAIT DISTURBANCE [None]
  - TENDON DISORDER [None]
  - VISUAL IMPAIRMENT [None]
  - MUSCLE TWITCHING [None]
  - MUSCLE DISORDER [None]
